FAERS Safety Report 8223435-8 (Version None)
Quarter: 2012Q1

REPORT INFORMATION
  Report Type: 
  Country: None (occurrence: None)
  Receive Date: 20120321
  Receipt Date: 20120309
  Transmission Date: 20120608
  Serious: Yes (Death)
  Sender: FDA-Public Use
  Company Number: FR-ELI_LILLY_AND_COMPANY-FR201202003898

PATIENT
  Age: 81 Year
  Sex: Female

DRUGS (2)
  1. FORTEO [Suspect]
     Indication: OSTEOPOROSIS
     Dosage: 20 UG, QD
     Route: 058
     Dates: start: 20111121
  2. CHEMOTHERAPEUTICS [Concomitant]
     Indication: MALIGNANT MELANOMA

REACTIONS (2)
  - METASTATIC MALIGNANT MELANOMA [None]
  - NEOPLASM PROGRESSION [None]
